FAERS Safety Report 6442949-4 (Version None)
Quarter: 2009Q4

REPORT INFORMATION
  Report Type: 
  Country: None (occurrence: None)
  Receive Date: 20091117
  Receipt Date: 20091105
  Transmission Date: 20100525
  Serious: Yes (Other)
  Sender: FDA-Public Use
  Company Number: JP-PFIZER INC-2009295273

PATIENT
  Age: 69 Year
  Sex: Male
  Weight: 57.7 kg

DRUGS (12)
  1. SUNITINIB MALATE [Suspect]
     Indication: RENAL CELL CARCINOMA
     Dosage: 50 MG, 1X/DAY
     Route: 048
     Dates: start: 20090817
  2. DIOVAN [Concomitant]
     Route: 048
     Dates: start: 20090820, end: 20090916
  3. AMLODIPINE [Concomitant]
     Dosage: UNK
     Route: 048
  4. ADONA [Concomitant]
     Dosage: UNK
     Route: 048
  5. CARNACULIN [Concomitant]
     Dosage: UNK
     Route: 048
  6. REMICUT [Concomitant]
     Dosage: UNK
     Route: 048
  7. ATARAX [Concomitant]
     Dosage: UNK
     Route: 048
  8. LAC B [Concomitant]
     Dosage: UNK
     Route: 048
  9. MYSER [Concomitant]
     Dosage: UNK
     Route: 062
  10. DIPHENHYDRAMINE HCL [Concomitant]
     Dosage: UNK
     Route: 062
  11. FULMETA [Concomitant]
     Dosage: UNK
     Route: 062
  12. KERATINAMIN [Concomitant]
     Dosage: UNK
     Route: 062
     Dates: start: 20090826, end: 20090918

REACTIONS (1)
  - VITREOUS HAEMORRHAGE [None]
